FAERS Safety Report 5156851-1 (Version None)
Quarter: 2006Q4

REPORT INFORMATION
  Report Type: 
  Country: None (occurrence: None)
  Receive Date: 20061115
  Receipt Date: 20061106
  Transmission Date: 20070319
  Serious: Yes (Hospitalization, Other)
  Sender: FDA-Public Use
  Company Number: 2006131921

PATIENT
  Age: 73 Year
  Sex: Female
  Weight: 58 kg

DRUGS (3)
  1. LIPITOR [Suspect]
     Indication: HYPERCHOLESTEROLAEMIA
     Dosage: 10 MG (10 MG, 1 IN 1 D), ORAL
     Route: 048
     Dates: end: 20061009
  2. NORVASC [Concomitant]
  3. DRUG (DRUG) [Concomitant]

REACTIONS (13)
  - BILIARY CIRRHOSIS PRIMARY [None]
  - CHOLELITHIASIS [None]
  - CHOLESTASIS [None]
  - CONDITION AGGRAVATED [None]
  - HEPATIC STEATOSIS [None]
  - HEPATITIS ACUTE [None]
  - HEPATOCELLULAR DAMAGE [None]
  - HYPERTHERMIA [None]
  - JAUNDICE CHOLESTATIC [None]
  - LIVER DISORDER [None]
  - THERAPY NON-RESPONDER [None]
  - UPPER RESPIRATORY TRACT INFLAMMATION [None]
  - VIRAL INFECTION [None]
